FAERS Safety Report 8716435 (Version 2)
Quarter: 2013Q4

REPORT INFORMATION
  Report Type: Spontaneous
  Country: US (occurrence: US)
  Receive Date: 20120810
  Receipt Date: 20131101
  Transmission Date: 20140711
  Serious: No
  Sender: FDA-Public Use
  Company Number: US-009507513-1207USA011723

PATIENT
  Age: 52 Year
  Sex: Female

DRUGS (6)
  1. SAPHRIS [Suspect]
     Indication: BIPOLAR DISORDER
     Dosage: 5 MG, UNK
     Route: 060
     Dates: start: 201207
  2. LAMOTRIGINE [Concomitant]
  3. LEVOTHYROXINE SODIUM [Concomitant]
     Dosage: 50 MICROGRAM, QD
  4. ESTROGENS (UNSPECIFIED) [Concomitant]
     Indication: HORMONE REPLACEMENT THERAPY
     Dosage: LOW DOSE
  5. PROGESTERONE [Concomitant]
     Indication: HORMONE REPLACEMENT THERAPY
     Dosage: LOW DOSE
  6. ASPIRIN [Concomitant]

REACTIONS (3)
  - Insomnia [Recovered/Resolved]
  - Restless legs syndrome [Recovered/Resolved]
  - Product taste abnormal [Unknown]
